FAERS Safety Report 9460157 (Version 1)
Quarter: 2013Q3

REPORT INFORMATION
  Report Type: Report from Study
  Country: US (occurrence: US)
  Receive Date: 20130815
  Receipt Date: 20130815
  Transmission Date: 20140515
  Serious: Yes (Hospitalization, Other)
  Sender: FDA-Public Use
  Company Number: US-ABBOTT-13P-163-1099248-00

PATIENT
  Age: 60 Year
  Sex: Male

DRUGS (9)
  1. HUMIRA [Suspect]
     Indication: COLITIS ULCERATIVE
     Dates: start: 20130430, end: 20130430
  2. HUMIRA [Suspect]
     Dates: start: 20130514, end: 20130514
  3. HUMIRA [Suspect]
     Dates: start: 20130528
  4. AMITRIPTYLINE [Concomitant]
     Indication: INSOMNIA
     Dosage: AT BEDTIME
  5. PREDNISONE [Concomitant]
     Indication: PRODUCT USED FOR UNKNOWN INDICATION
     Dosage: REDUCED TO ALTERNATING BETWEEN 30MG AND 35MG)
     Route: 048
  6. PREDNISONE [Concomitant]
  7. LIALDA [Concomitant]
     Indication: PRODUCT USED FOR UNKNOWN INDICATION
  8. TESTIM [Concomitant]
     Indication: BLOOD TESTOSTERONE DECREASED
     Dosage: DAILY
     Route: 061
  9. CIALIS [Concomitant]
     Indication: POLYMEDICATION

REACTIONS (13)
  - Laceration [Unknown]
  - Wound haemorrhage [Unknown]
  - Limb injury [Unknown]
  - Deep vein thrombosis [Not Recovered/Not Resolved]
  - Limb discomfort [Not Recovered/Not Resolved]
  - Pain in extremity [Not Recovered/Not Resolved]
  - Muscle spasms [Recovering/Resolving]
  - Bone pain [Not Recovered/Not Resolved]
  - Limb discomfort [Unknown]
  - Local swelling [Unknown]
  - Pain in extremity [Unknown]
  - Vein disorder [Unknown]
  - Fatigue [Not Recovered/Not Resolved]
